FAERS Safety Report 16379576 (Version 1)
Quarter: 2019Q2

REPORT INFORMATION
  Report Type: Spontaneous
  Country: FR (occurrence: FR)
  Receive Date: 20190531
  Receipt Date: 20190531
  Transmission Date: 20190711
  Serious: Yes (Hospitalization, Other)
  Sender: FDA-Public Use
  Company Number: FR-MYLANLABS-2019M1050797

PATIENT
  Age: 55 Year
  Sex: Male
  Weight: 86 kg

DRUGS (15)
  1. OXYCONTIN [Concomitant]
     Active Substance: OXYCODONE HYDROCHLORIDE
     Indication: BONE PAIN
     Dosage: 20 MILLIGRAM, QD
     Route: 048
     Dates: start: 20160701
  2. ZOFRAN [Concomitant]
     Active Substance: ONDANSETRON HYDROCHLORIDE
     Indication: NAUSEA
     Dosage: DOSAGE FORM: UNSPECIFIED
     Route: 065
     Dates: start: 20160603
  3. ROXITHROMYCIN [Concomitant]
     Active Substance: ROXITHROMYCIN
     Dosage: 150 MILLIGRAM, QD
     Route: 065
  4. OXYNORM [Concomitant]
     Active Substance: OXYCODONE HYDROCHLORIDE
     Indication: BONE PAIN
     Dosage: DOSAGE FORM: UNSPECIFIED
     Route: 065
  5. WELLVONE [Concomitant]
     Active Substance: ATOVAQUONE
     Dosage: DOSAGE FORM: UNSPECIFIED
     Route: 065
  6. MICROLAX                           /00285401/ [Concomitant]
     Indication: CONSTIPATION
     Dosage: UNK
     Route: 065
     Dates: start: 20160603
  7. AMLODIPINE [Concomitant]
     Active Substance: AMLODIPINE BESYLATE
     Indication: HYPERTENSION
     Dosage: 6 MILLIGRAM, QD
     Route: 065
  8. RANITIDINE. [Concomitant]
     Active Substance: RANITIDINE
     Dosage: 300 MILLIGRAM, QD
     Route: 065
  9. DEXAMETHASONE. [Suspect]
     Active Substance: DEXAMETHASONE
     Indication: PLASMA CELL MYELOMA
     Dosage: 20 MILLIGRAM, QD
     Route: 048
     Dates: start: 20160527
  10. VELCADE [Suspect]
     Active Substance: BORTEZOMIB
     Indication: PLASMA CELL MYELOMA
     Dosage: 1.3 MILLIGRAM/SQ. METER (DOSAGE FORM: LYOPHILIZED POWDER, ON DAYS 1, 4, 8 AND 11)
     Route: 058
     Dates: start: 20160527
  11. THALIDOMIDE [Suspect]
     Active Substance: THALIDOMIDE
     Indication: PLASMA CELL MYELOMA
     Dosage: 100 MILLIGRAM, QD
     Route: 048
     Dates: start: 20160527
  12. KARDEGIC [Concomitant]
     Active Substance: ASPIRIN DL-LYSINE
     Indication: THROMBOSIS
     Dosage: DOSAGE FORM: SACHET
     Route: 065
     Dates: start: 20160527
  13. FERRO-SEQUELS [Concomitant]
     Active Substance: DOCUSATE SODIUM\FERROUS FUMARATE
     Indication: HAEMATOTOXICITY
     Dosage: DOSAGE FORM: UNSPECIFIED
     Route: 065
  14. MOVICOL [Concomitant]
     Active Substance: POLYETHYLENE GLYCOL 3350\POTASSIUM CHLORIDE\SODIUM BICARBONATE\SODIUM CHLORIDE
     Indication: CONSTIPATION
     Dosage: DOSAGE FORM: UNSPECIFIED
     Route: 065
  15. DARATUMUMAB [Suspect]
     Active Substance: DARATUMUMAB
     Indication: PLASMA CELL MYELOMA
     Dosage: 16 MILLIGRAM/KILOGRAM
     Route: 042
     Dates: start: 20160527

REACTIONS (5)
  - Nausea [Unknown]
  - Varicella [Recovered/Resolved]
  - Condition aggravated [Unknown]
  - Constipation [Unknown]
  - Pyrexia [Unknown]

NARRATIVE: CASE EVENT DATE: 20160913
